FAERS Safety Report 16224325 (Version 1)
Quarter: 2019Q2

REPORT INFORMATION
  Report Type: Spontaneous
  Country: DE (occurrence: DE)
  Receive Date: 20190422
  Receipt Date: 20190422
  Transmission Date: 20190711
  Serious: Yes (Other)
  Sender: FDA-Public Use
  Company Number: DE-PFIZER INC-2019166312

PATIENT
  Sex: Female

DRUGS (3)
  1. LEVETIRACETAM. [Suspect]
     Active Substance: LEVETIRACETAM
     Dosage: 1000 MG, 2X/DAY (BID)
  2. LAMOTRIGINE. [Concomitant]
     Active Substance: LAMOTRIGINE
     Dosage: UNK
  3. BRIVIACT [Suspect]
     Active Substance: BRIVARACETAM
     Dosage: 100 MG, 2X/DAY (BID)

REACTIONS (2)
  - Seizure [Unknown]
  - Behaviour disorder [Unknown]
